FAERS Safety Report 19713220 (Version 1)
Quarter: 2021Q3

REPORT INFORMATION
  Report Type: Spontaneous
  Country: US (occurrence: US)
  Receive Date: 20210816
  Receipt Date: 20210816
  Transmission Date: 20211014
  Serious: No
  Sender: FDA-Public Use
  Company Number: None

PATIENT
  Age: 44 Year
  Sex: Female
  Weight: 82 kg

DRUGS (2)
  1. METHOCARBAMOL (METHOCARBAMOL 500MG TAB) [Suspect]
     Active Substance: METHOCARBAMOL
     Indication: MUSCLE SPASMS
  2. CLONIDINE (CLONIDINE HCL 0.2MG TAB) [Suspect]
     Active Substance: CLONIDINE HYDROCHLORIDE
     Indication: HYPERTENSION

REACTIONS (2)
  - Intentional overdose [None]
  - Alcohol use [None]

NARRATIVE: CASE EVENT DATE: 20210725
